FAERS Safety Report 14861220 (Version 1)
Quarter: 2018Q2

REPORT INFORMATION
  Report Type: Spontaneous
  Country: US (occurrence: US)
  Receive Date: 20180508
  Receipt Date: 20180508
  Transmission Date: 20180711
  Serious: No
  Sender: FDA-Public Use
  Company Number: US-CELGENEUS-USA-20180501462

PATIENT
  Sex: Male
  Weight: 129 kg

DRUGS (1)
  1. OTEZLA [Suspect]
     Active Substance: APREMILAST
     Indication: PSORIASIS
     Route: 048
     Dates: start: 2018

REACTIONS (2)
  - Depression [Not Recovered/Not Resolved]
  - Excessive masturbation [Not Recovered/Not Resolved]

NARRATIVE: CASE EVENT DATE: 2018
